FAERS Safety Report 4581719-9 (Version None)
Quarter: 2005Q1

REPORT INFORMATION
  Report Type: 
  Country: None (occurrence: None)
  Receive Date: 20050214
  Receipt Date: 20041228
  Transmission Date: 20050727
  Serious: No
  Sender: FDA-Public Use
  Company Number: US-GLAXOSMITHKLINE-A0538567A

PATIENT
  Age: 83 Year
  Sex: Male

DRUGS (7)
  1. LAMICTAL [Suspect]
     Dosage: 100MG TWICE PER DAY
     Route: 048
     Dates: start: 20031101
  2. FOSAMAX [Concomitant]
  3. TOPROL-XL [Concomitant]
  4. HYTRIN [Concomitant]
  5. ZOCOR [Concomitant]
  6. CHLOROTHIAZIDE [Concomitant]
  7. FLECAINIDE ACETATE [Concomitant]

REACTIONS (1)
  - TREMOR [None]
